FAERS Safety Report 7546994-7 (Version None)
Quarter: 2011Q2

REPORT INFORMATION
  Report Type: 
  Country: None (occurrence: None)
  Receive Date: 20110614
  Receipt Date: 20110606
  Transmission Date: 20111010
  Serious: Yes (Other)
  Sender: FDA-Public Use
  Company Number: PHHY2011JP49333

PATIENT
  Age: 77 Year
  Sex: Female

DRUGS (2)
  1. CARBOPLATIN [Suspect]
     Indication: SMALL CELL LUNG CANCER EXTENSIVE STAGE
     Dosage: UNK
     Route: 042
     Dates: start: 20101201
  2. ETOPOSIDE [Suspect]
     Indication: SMALL CELL LUNG CANCER EXTENSIVE STAGE
     Dosage: UNK
     Dates: start: 20101201

REACTIONS (4)
  - STRESS CARDIOMYOPATHY [None]
  - ELECTROCARDIOGRAM ST SEGMENT ELEVATION [None]
  - CHEST DISCOMFORT [None]
  - NAUSEA [None]
